FAERS Safety Report 24813274 (Version 1)
Quarter: 2025Q1

REPORT INFORMATION
  Report Type: Report from Study
  Country: US (occurrence: US)
  Receive Date: 20250107
  Receipt Date: 20250107
  Transmission Date: 20250409
  Serious: Yes (Death)
  Sender: ROCHE
  Company Number: US-ROCHE-10000172779

PATIENT
  Age: 26 Year
  Sex: Female

DRUGS (1)
  1. TECENTRIQ [Suspect]
     Active Substance: ATEZOLIZUMAB
     Indication: Neoplasm malignant
     Dosage: INFUSE 1200MG INTRAVENOUSLY EVERY 21 DAY(S)
     Route: 042

REACTIONS (2)
  - Death [Fatal]
  - Off label use [Unknown]
